FAERS Safety Report 8650630 (Version 5)
Quarter: 2014Q3

REPORT INFORMATION
  Report Type: Report from Study
  Country: CA (occurrence: CA)
  Receive Date: 20120705
  Receipt Date: 20140711
  Transmission Date: 20150326
  Serious: Yes (Hospitalization, Other)
  Sender: FDA-Public Use
  Company Number: CA-TEVA-345301USA

PATIENT
  Age: 69 Year
  Sex: Male
  Weight: 77.8 kg

DRUGS (9)
  1. CALCIUM CARBONATE. [Concomitant]
     Active Substance: CALCIUM CARBONATE
  2. TREANDA [Suspect]
     Active Substance: BENDAMUSTINE HYDROCHLORIDE
     Indication: CHRONIC LYMPHOCYTIC LEUKAEMIA
     Route: 042
     Dates: start: 20120426, end: 20120427
  3. TREANDA [Suspect]
     Active Substance: BENDAMUSTINE HYDROCHLORIDE
     Route: 042
     Dates: start: 20120621, end: 20120621
  4. ROSUVASTATIN [Concomitant]
     Active Substance: ROSUVASTATIN
  5. AMLODIPINE [Concomitant]
     Active Substance: AMLODIPINE BESYLATE
     Indication: HYPERTENSION
     Dosage: 2.5 MILLIGRAM DAILY;
     Route: 048
     Dates: start: 201206
  6. ASA [Concomitant]
     Active Substance: ASPIRIN
  7. BISOPROLOL [Concomitant]
     Active Substance: BISOPROLOL
  8. SUCRALFATE. [Concomitant]
     Active Substance: SUCRALFATE
  9. TREANDA [Suspect]
     Active Substance: BENDAMUSTINE HYDROCHLORIDE
     Route: 042
     Dates: start: 20120524, end: 20120525

REACTIONS (2)
  - Systemic inflammatory response syndrome [Recovered/Resolved]
  - Renal failure acute [Recovered/Resolved]

NARRATIVE: CASE EVENT DATE: 20120621
